FAERS Safety Report 24592354 (Version 2)
Quarter: 2024Q4

REPORT INFORMATION
  Report Type: Spontaneous
  Country: US (occurrence: US)
  Receive Date: 20241108
  Receipt Date: 20241125
  Transmission Date: 20250114
  Serious: Yes (Hospitalization)
  Sender: GRIFOLS
  Company Number: US-IGSA-BIG0031441

PATIENT
  Sex: Male
  Weight: 139.68 kg

DRUGS (29)
  1. PROLASTIN-C LIQUID [Suspect]
     Active Substance: .ALPHA.1-PROTEINASE INHIBITOR HUMAN
     Indication: Alpha-1 antitrypsin deficiency
     Dosage: 7252 MILLIGRAM, Q.WK.
     Route: 042
  2. PROLASTIN-C LIQUID [Suspect]
     Active Substance: .ALPHA.1-PROTEINASE INHIBITOR HUMAN
     Dosage: 8240 UNK
     Route: 042
  3. DIPHENHYDRAMINE HYDROCHLORIDE [Concomitant]
     Active Substance: DIPHENHYDRAMINE HYDROCHLORIDE
  4. EPINEPHRINE [Concomitant]
     Active Substance: EPINEPHRINE
  5. HEPARIN [Concomitant]
     Active Substance: HEPARIN SODIUM
     Dosage: 100 UNITS/ML
  6. LIDOCAINE\PRILOCAINE [Concomitant]
     Active Substance: LIDOCAINE\PRILOCAINE
  7. SODIUM CHLORIDE [Concomitant]
     Active Substance: SODIUM CHLORIDE
  8. MOUNJARO [Concomitant]
     Active Substance: TIRZEPATIDE
     Dosage: 15MG/0.5ML
  9. HUMALOG [Concomitant]
     Active Substance: INSULIN LISPRO
  10. TOUJEO MAX [Concomitant]
     Active Substance: INSULIN GLARGINE
  11. TORSEMIDE [Concomitant]
     Active Substance: TORSEMIDE
     Dosage: 20 MILLIGRAM
     Route: 048
  12. FLUTICASONE PROPIONATE [Concomitant]
     Active Substance: FLUTICASONE PROPIONATE
     Dosage: 50 MCG
  13. ENTRESTO [Concomitant]
     Active Substance: SACUBITRIL\VALSARTAN
     Dosage: 24 MG-26MG
     Route: 048
  14. BUDESONIDE [Concomitant]
     Active Substance: BUDESONIDE
     Dosage: 0.5 MG/2ML
  15. FARXIGA [Concomitant]
     Active Substance: DAPAGLIFLOZIN PROPANEDIOL
     Dosage: 5 MILLIGRAM
     Route: 048
  16. THEOPHYLLINE [Concomitant]
     Active Substance: THEOPHYLLINE
     Dosage: 400 MILLIGRAM
     Route: 048
  17. ALBUTEROL SULFATE [Concomitant]
     Active Substance: ALBUTEROL SULFATE
     Dosage: 10 MILLIGRAM
     Route: 048
  18. CETIRIZINE HCL [Concomitant]
     Active Substance: CETIRIZINE HYDROCHLORIDE
     Dosage: 10 MILLIGRAM
     Route: 048
  19. IPRATROPIUM BROMIDE AND ALBUTEROL SULFATE [Concomitant]
     Active Substance: ALBUTEROL SULFATE\IPRATROPIUM BROMIDE
  20. DICYCLOMINE HYDROCHLORIDE [Concomitant]
     Active Substance: DICYCLOMINE HYDROCHLORIDE
     Dosage: 10 MILLIGRAM
     Route: 048
  21. POTASSIUM CHLORIDE [Concomitant]
     Active Substance: POTASSIUM CHLORIDE
  22. ATORVASTATIN CALCIUM [Concomitant]
     Active Substance: ATORVASTATIN CALCIUM
     Dosage: 40 MILLIGRAM
     Route: 048
  23. DOCUSATE SODIUM [Concomitant]
     Active Substance: DOCUSATE SODIUM
     Dosage: 100 MILLIGRAM
  24. ASPIRIN [Concomitant]
     Active Substance: ASPIRIN
     Dosage: 81 MILLIGRAM
     Route: 048
  25. MONTELUKAST SODIUM [Concomitant]
     Active Substance: MONTELUKAST SODIUM
     Dosage: 10 MILLIGRAM
     Route: 048
  26. CLONAZEPAM [Concomitant]
     Active Substance: CLONAZEPAM
     Dosage: 1 MILLIGRAM
     Route: 048
  27. PANTOPRAZOLE SODIUM ANHYDROUS [Concomitant]
     Active Substance: PANTOPRAZOLE SODIUM ANHYDROUS
  28. ONDANSETRON HYDROCHLORIDE [Concomitant]
     Active Substance: ONDANSETRON HYDROCHLORIDE
     Dosage: 4 MILLIGRAM
     Route: 048
  29. OXYGEN [Concomitant]
     Active Substance: OXYGEN

REACTIONS (2)
  - Diabetic foot [Not Recovered/Not Resolved]
  - Localised infection [Not Recovered/Not Resolved]
